FAERS Safety Report 4998320-5 (Version None)
Quarter: 2006Q2

REPORT INFORMATION
  Report Type: 
  Country: None (occurrence: None)
  Receive Date: 20060508
  Receipt Date: 20060428
  Transmission Date: 20061013
  Serious: Yes (Hospitalization, Other)
  Sender: FDA-Public Use
  Company Number: 007007

PATIENT
  Age: 15 Year
  Sex: Male

DRUGS (2)
  1. CLARAVIS [Suspect]
     Indication: ACNE
     Dosage: 1 CAPS, QOD, ORAL; 2 CAPS, QOD, ORAL
     Route: 048
     Dates: start: 20051010, end: 20060323
  2. CLARAVIS [Suspect]
     Indication: ACNE
     Dosage: 1 CAPS, QOD, ORAL; 2 CAPS, QOD, ORAL
     Route: 048
     Dates: start: 20051010, end: 20060324

REACTIONS (4)
  - AGGRESSION [None]
  - DEPRESSION [None]
  - PANIC ATTACK [None]
  - SUICIDAL IDEATION [None]
